FAERS Safety Report 7503668-6 (Version None)
Quarter: 2011Q2

REPORT INFORMATION
  Report Type: 
  Country: None (occurrence: None)
  Receive Date: 20110518
  Receipt Date: 20110505
  Transmission Date: 20111010
  Serious: Yes (Hospitalization)
  Sender: FDA-Public Use
  Company Number: UCM201105-000011

PATIENT
  Age: 60 Year
  Sex: Male

DRUGS (6)
  1. BISOPROLOL FUMARATE [Concomitant]
  2. MELOXICAM [Suspect]
     Indication: OSTEOARTHRITIS
     Dosage: (15 MG/DAY)
  3. LOSARTAN POTASSIUM [Concomitant]
  4. ATORVASTATIN [Concomitant]
  5. PANTOPRAZOLE [Concomitant]
  6. CELECOXIB [Concomitant]

REACTIONS (1)
  - NEPHROTIC SYNDROME [None]
